FAERS Safety Report 25925378 (Version 1)
Quarter: 2025Q4

REPORT INFORMATION
  Report Type: Spontaneous
  Country: US (occurrence: None)
  Receive Date: 20251013
  Receipt Date: 20251013
  Transmission Date: 20260117
  Serious: Yes (Hospitalization)
  Sender: FDA-CTU
  Company Number: None

PATIENT
  Age: 51 Year
  Sex: Female
  Weight: 68 kg

DRUGS (1)
  1. VUEWAY [Suspect]
     Active Substance: GADOPICLENOL
     Indication: Magnetic resonance imaging head
     Dosage: OTHER FREQUENCY : ONCE;?
     Route: 040
     Dates: start: 20250915, end: 20250915

REACTIONS (5)
  - Oropharyngeal pain [None]
  - Nausea [None]
  - Chest discomfort [None]
  - Refusal of treatment by patient [None]
  - Foreign body in throat [None]

NARRATIVE: CASE EVENT DATE: 20250915
